FAERS Safety Report 21349016 (Version 1)
Quarter: 2022Q3

REPORT INFORMATION
  Report Type: Spontaneous
  Country: FR (occurrence: FR)
  Receive Date: 20220919
  Receipt Date: 20220919
  Transmission Date: 20221026
  Serious: Yes (Hospitalization)
  Sender: FDA-Public Use
  Company Number: FR-SUN PHARMACEUTICAL INDUSTRIES LTD-2022RR-355086

PATIENT
  Age: 76 Year
  Sex: Male

DRUGS (1)
  1. OXALIPLATIN [Suspect]
     Active Substance: OXALIPLATIN
     Indication: Colon cancer
     Dosage: 125 MILLIGRAM EVERY 14 DAYS
     Route: 040
     Dates: start: 20220725

REACTIONS (6)
  - Oxygen saturation decreased [Not Recovered/Not Resolved]
  - Paraesthesia [Recovered/Resolved]
  - Hyperthermia [Not Recovered/Not Resolved]
  - Hyperthermia [Recovered/Resolved]
  - Headache [Recovered/Resolved]
  - Arthralgia [Recovered/Resolved]

NARRATIVE: CASE EVENT DATE: 20220725
